FAERS Safety Report 9921425 (Version 1)
Quarter: 2014Q1

REPORT INFORMATION
  Report Type: Report from Study
  Country: US (occurrence: US)
  Receive Date: 20140225
  Receipt Date: 20140225
  Transmission Date: 20141002
  Serious: Yes (Disabling, Other)
  Sender: FDA-Public Use
  Company Number: PHEH2014US003476

PATIENT
  Age: 58 Year
  Sex: Female

DRUGS (9)
  1. DIOVAN [Suspect]
     Dosage: 80 MG, A DAY
  2. ACE INHIBITOR NOS [Suspect]
  3. METOPROLOL [Concomitant]
  4. HYDROCHLOROTHIAZIDE [Concomitant]
  5. METFORMIN [Concomitant]
  6. VITAMIN D [Concomitant]
  7. PLAVIX [Concomitant]
  8. LIPITOR [Concomitant]
  9. GLIPIZIDE [Concomitant]

REACTIONS (2)
  - Cerebrovascular accident [Unknown]
  - Cough [Unknown]
